FAERS Safety Report 8393098-X (Version None)
Quarter: 2012Q2

REPORT INFORMATION
  Report Type: 
  Country: None (occurrence: None)
  Receive Date: 20120529
  Receipt Date: 20120420
  Transmission Date: 20120825
  Serious: No
  Sender: FDA-Public Use
  Company Number: US-ABBOTT-12P-163-0928091-00

PATIENT
  Sex: Male
  Weight: 86.26 kg

DRUGS (2)
  1. ANDROGEL [Suspect]
     Indication: BLOOD TESTOSTERONE DECREASED
     Dosage: ONE PUMP PER SIDE, ONCE DAILY
     Route: 061
     Dates: start: 20110601, end: 20120401
  2. ANDROGEL [Suspect]
     Indication: FATIGUE

REACTIONS (5)
  - BENIGN PROSTATIC HYPERPLASIA [None]
  - NOCTURIA [None]
  - MICTURITION URGENCY [None]
  - POLLAKIURIA [None]
  - FATIGUE [None]
